FAERS Safety Report 6588156-6 (Version None)
Quarter: 2010Q1

REPORT INFORMATION
  Report Type: 
  Country: None (occurrence: None)
  Receive Date: 20100218
  Receipt Date: 20091210
  Transmission Date: 20100710
  Serious: No
  Sender: FDA-Public Use
  Company Number: US-ASTRAZENECA-2009SE27139

PATIENT
  Sex: Male

DRUGS (1)
  1. PLENDIL [Suspect]
     Route: 048
     Dates: start: 20050101, end: 20091101

REACTIONS (4)
  - BLOOD PRESSURE INCREASED [None]
  - DRUG DOSE OMISSION [None]
  - DRUG HYPERSENSITIVITY [None]
  - JOINT SWELLING [None]
